FAERS Safety Report 5368719-6 (Version None)
Quarter: 2007Q2

REPORT INFORMATION
  Report Type: 
  Country: None (occurrence: None)
  Receive Date: 20070621
  Receipt Date: 20070621
  Transmission Date: 20071010
  Serious: Yes (Other)
  Sender: FDA-Public Use
  Company Number: None

PATIENT
  Sex: Male

DRUGS (16)
  1. REVLIMID [Suspect]
     Indication: MULTIPLE MYELOMA
     Dosage: 15MG DAILY 14D/28D PO
     Route: 048
  2. DEXAMETHASONE 0.5MG TAB [Concomitant]
  3. ZOMETA [Concomitant]
  4. ELAVIL [Concomitant]
  5. WARFARIN SODIUM [Concomitant]
  6. TEMAZEPAM [Concomitant]
  7. VICODIN [Concomitant]
  8. LASIX [Concomitant]
  9. METFORMIN HCL [Concomitant]
  10. MEVACOR [Concomitant]
  11. LISINOPRIL [Concomitant]
  12. DIGITEK [Concomitant]
  13. TERAZOSIN HCL [Concomitant]
  14. PROCRIT [Concomitant]
  15. BISOPROLOL [Concomitant]
  16. ZANTAC [Concomitant]

REACTIONS (5)
  - ANAEMIA [None]
  - BLOOD CREATININE INCREASED [None]
  - NEUTROPENIA [None]
  - THROMBOCYTOPENIA [None]
  - WHITE BLOOD CELL COUNT DECREASED [None]
